FAERS Safety Report 9139294 (Version 2)
Quarter: 2013Q2

REPORT INFORMATION
  Report Type: Spontaneous
  Country: NL (occurrence: NL)
  Receive Date: 20130305
  Receipt Date: 20130415
  Transmission Date: 20140414
  Serious: Yes (Death, Other)
  Sender: FDA-Public Use
  Company Number: PHHY2013NL021086

PATIENT
  Sex: Male

DRUGS (4)
  1. ZOMETA [Suspect]
     Indication: PROSTATE CANCER METASTATIC
     Dosage: 4 MG PER 100 ML ONCE PER 28 DAYS
     Route: 042
  2. ZOMETA [Suspect]
     Dosage: 4 MG PER 100 ML ONCE PER 28 DAYS
     Route: 042
     Dates: start: 20111228
  3. ZOMETA [Suspect]
     Dosage: 4 MG PER 100 ML ONCE PER 28 DAYS
     Route: 042
     Dates: start: 20130110
  4. ZOMETA [Suspect]
     Dosage: 4 MG PER 100 ML ONCE PER 28 DAYS
     Route: 042
     Dates: start: 20130207

REACTIONS (3)
  - Prostate cancer [Fatal]
  - Myocardial infarction [Unknown]
  - Blood urine present [Unknown]
